FAERS Safety Report 8070455-2 (Version None)
Quarter: 2012Q1

REPORT INFORMATION
  Report Type: 
  Country: None (occurrence: None)
  Receive Date: 20120125
  Receipt Date: 20120119
  Transmission Date: 20120608
  Serious: Yes (Other)
  Sender: FDA-Public Use
  Company Number: US-JNJFOC-20120109836

PATIENT
  Sex: Male

DRUGS (2)
  1. ROGAINE (FOR MEN) [Suspect]
     Indication: PRODUCT USED FOR UNKNOWN INDICATION
     Dosage: 1/2 CAPFUL
     Route: 061
  2. ROGAINE (FOR MEN) [Suspect]
     Route: 061

REACTIONS (2)
  - TREMOR [None]
  - NEUROPATHY PERIPHERAL [None]
